FAERS Safety Report 22087186 (Version 2)
Quarter: 2024Q1

REPORT INFORMATION
  Report Type: Other
  Country: US (occurrence: None)
  Receive Date: 20230313
  Receipt Date: 20240327
  Transmission Date: 20240410
  Serious: Yes (Other)
  Sender: FDA-Public Use
  Company Number: US-ROCHE-3299810

PATIENT
  Age: 25 Year
  Sex: Female
  Weight: 118.04 kg

DRUGS (5)
  1. RITUXAN [Suspect]
     Active Substance: RITUXIMAB
     Indication: Relapsing-remitting multiple sclerosis
     Dosage: RITUXAN 1000MG LOADING DOSE 1000MG, DAY ONE AND THEN DAY 15 , MAINTENANCE DOSE 1000MG 1 EVERY 6 MONT
     Route: 041
     Dates: start: 2021, end: 2021
  2. LORAZEPAM [Concomitant]
     Active Substance: LORAZEPAM
  3. COPAXONE [Concomitant]
     Active Substance: GLATIRAMER ACETATE
  4. MORPHINE [Concomitant]
     Active Substance: MORPHINE
  5. AVONEX [Concomitant]
     Active Substance: INTERFERON BETA-1A

REACTIONS (3)
  - Off label use [Unknown]
  - Anaphylactic shock [Recovered/Resolved]
  - Maternal exposure before pregnancy [Unknown]

NARRATIVE: CASE EVENT DATE: 20210101
